FAERS Safety Report 4724395-4 (Version None)
Quarter: 2005Q3

REPORT INFORMATION
  Report Type: 
  Country: None (occurrence: None)
  Receive Date: 20050722
  Receipt Date: 20050705
  Transmission Date: 20060218
  Serious: No
  Sender: FDA-Public Use
  Company Number: 11753

PATIENT
  Age: 64 Year
  Sex: Male

DRUGS (3)
  1. MORPHINE [Suspect]
     Indication: BONE PAIN
     Dosage: 85 MG Q4HR PO
     Route: 048
  2. PAMIDRONATE DISODIUM [Suspect]
     Indication: BONE PAIN
     Dosage: IV
     Route: 042
  3. VALPROIC ACID [Concomitant]

REACTIONS (8)
  - COGNITIVE DISORDER [None]
  - CONFUSIONAL STATE [None]
  - DRUG TOXICITY [None]
  - LUMBAR VERTEBRAL FRACTURE [None]
  - NEUROPATHIC PAIN [None]
  - NEUROTOXICITY [None]
  - REFUSAL OF TREATMENT BY PATIENT [None]
  - SOMNOLENCE [None]
